FAERS Safety Report 16839964 (Version 3)
Quarter: 2019Q4

REPORT INFORMATION
  Report Type: Report from Study
  Country: ES (occurrence: ES)
  Receive Date: 20190923
  Receipt Date: 20191212
  Transmission Date: 20200122
  Serious: Yes (Hospitalization)
  Sender: FDA-Public Use
  Company Number: ES-CELGENEUS-ESP-20180900169

PATIENT
  Age: 72 Year
  Sex: Female

DRUGS (8)
  1. RETACRIT [Concomitant]
     Active Substance: EPOETIN ALFA-EPBX
     Indication: ANAEMIA
     Route: 065
     Dates: start: 20180903, end: 20180907
  2. DACORTIN [Concomitant]
     Active Substance: PREDNISONE
     Indication: RASH
     Dosage: 15 MILLIGRAM
     Route: 048
     Dates: start: 20180901, end: 20180920
  3. POLARAMINE [Concomitant]
     Active Substance: DEXCHLORPHENIRAMINE MALEATE
     Indication: RASH
     Dosage: 4 MILLIGRAM
     Route: 048
     Dates: start: 20180901, end: 20180930
  4. EPOETIN ZETA [Concomitant]
     Active Substance: ERYTHROPOIETIN
     Indication: ANAEMIA
     Dosage: 30000 IU (INTERNATIONAL UNIT)
     Route: 058
     Dates: start: 20180828
  5. LORAZEPAM. [Concomitant]
     Active Substance: LORAZEPAM
     Indication: INSOMNIA
     Dosage: 1 MILLIGRAM
     Route: 048
     Dates: start: 20180828
  6. PREDNISONE. [Concomitant]
     Active Substance: PREDNISONE
     Indication: RASH
     Dosage: 30 MILLIGRAM
     Route: 048
     Dates: start: 20180829
  7. VIDAZA [Suspect]
     Active Substance: AZACITIDINE
     Indication: ACUTE MYELOID LEUKAEMIA
     Dosage: 75 MILLIGRAM/SQ. METER
     Route: 058
     Dates: start: 20180611
  8. DEXCLORFENIRAMINE [Concomitant]
     Active Substance: DEXCHLORPHENIRAMINE
     Indication: RASH
     Dosage: 15 MILLIGRAM
     Route: 041
     Dates: start: 20180828, end: 20180901

REACTIONS (8)
  - Venous thrombosis [Recovered/Resolved with Sequelae]
  - Venous thrombosis [Not Recovered/Not Resolved]
  - Febrile neutropenia [Recovered/Resolved]
  - Pneumonia necrotising [Recovered/Resolved]
  - Febrile neutropenia [Recovered/Resolved]
  - Venous thrombosis [Recovering/Resolving]
  - Febrile neutropenia [Recovered/Resolved]
  - Febrile neutropenia [Recovered/Resolved]

NARRATIVE: CASE EVENT DATE: 20180827
